FAERS Safety Report 5343357-X (Version None)
Quarter: 2007Q2

REPORT INFORMATION
  Report Type: 
  Country: None (occurrence: None)
  Receive Date: 20070501
  Receipt Date: 20070409
  Transmission Date: 20071010
  Serious: No
  Sender: FDA-Public Use
  Company Number: 200710391US

PATIENT
  Age: 36 Year
  Sex: Male
  Weight: 75.45 kg

DRUGS (7)
  1. KETEK [Suspect]
     Indication: SINUSITIS
     Dosage: 800 MG QD PO
     Route: 048
     Dates: start: 20051031, end: 20051104
  2. ESOMEPRAZOLE MAGNESIUM [Concomitant]
  3. MOMETASONE FUROATE (NASONEX) [Concomitant]
  4. CREATINE [Concomitant]
  5. ERGOCALCIFEROL, ASCORBIC ACID, FOLIC ACID, THIAMINE HYDROCHLORIDE, RET [Concomitant]
  6. . [Concomitant]
  7. . [Concomitant]

REACTIONS (3)
  - ALANINE AMINOTRANSFERASE INCREASED [None]
  - ASPARTATE AMINOTRANSFERASE INCREASED [None]
  - HEPATIC ENZYME INCREASED [None]
